FAERS Safety Report 4785660-8 (Version None)
Quarter: 2005Q3

REPORT INFORMATION
  Report Type: 
  Country: None (occurrence: None)
  Receive Date: 20050929
  Receipt Date: 20050919
  Transmission Date: 20060218
  Serious: Yes (Other)
  Sender: FDA-Public Use
  Company Number: 215245

PATIENT
  Age: 61 Year
  Sex: Female
  Weight: 57.6 kg

DRUGS (8)
  1. AVASTIN [Suspect]
     Indication: COLORECTAL CANCER METASTATIC
     Dosage: 15 MG/KG, Q3W, INTRAVENOUS
     Route: 042
     Dates: start: 20050401, end: 20050513
  2. TAXOL [Concomitant]
  3. CARBOPLATIN [Concomitant]
  4. BENADRYL [Concomitant]
  5. FAMOTIDINE [Concomitant]
  6. DOLASETRON (DOLASETRON MESYLATE) [Concomitant]
  7. IBUPROFEN [Concomitant]
  8. FOSAMAX [Concomitant]

REACTIONS (2)
  - EPISTAXIS [None]
  - NASAL SEPTUM PERFORATION [None]
